FAERS Safety Report 5607906-6 (Version None)
Quarter: 2008Q1

REPORT INFORMATION
  Report Type: 
  Country: None (occurrence: None)
  Receive Date: 20080130
  Receipt Date: 20070801
  Transmission Date: 20080703
  Serious: No
  Sender: FDA-Public Use
  Company Number: US-ASTRAZENECA-2007UW18429

PATIENT
  Sex: Female

DRUGS (1)
  1. LEXXEL [Suspect]
     Route: 048

REACTIONS (1)
  - DYSPHAGIA [None]
